FAERS Safety Report 11027389 (Version 2)
Quarter: 2015Q2

REPORT INFORMATION
  Report Type: Spontaneous
  Country: CZ (occurrence: CZ)
  Receive Date: 20150414
  Receipt Date: 20150424
  Transmission Date: 20150821
  Serious: Yes (Hospitalization)
  Sender: FDA-Public Use
  Company Number: CZ-ABBVIE-15P-217-1373137-00

PATIENT
  Age: 58 Year
  Sex: Male

DRUGS (2)
  1. PARACALCITOL [Suspect]
     Active Substance: PARICALCITOL
     Indication: PRODUCT USED FOR UNKNOWN INDICATION
     Route: 065
  2. WARFARIN [Concomitant]
     Active Substance: WARFARIN
     Indication: THROMBOSIS PROPHYLAXIS
     Route: 065

REACTIONS (4)
  - Peripheral ischaemia [Unknown]
  - Peripheral venous disease [Unknown]
  - Wound [Unknown]
  - Vascular calcification [Unknown]
